FAERS Safety Report 9532145 (Version 1)
Quarter: 2013Q3

REPORT INFORMATION
  Report Type: Spontaneous
  Country: US (occurrence: US)
  Receive Date: 20130918
  Receipt Date: 20130918
  Transmission Date: 20140515
  Serious: No
  Sender: FDA-Public Use
  Company Number: US-TEVA-432174USA

PATIENT
  Sex: Female

DRUGS (3)
  1. NUVIGIL [Suspect]
     Route: 048
  2. KLONOPIN [Suspect]
  3. CELEXA [Suspect]

REACTIONS (1)
  - Headache [Recovered/Resolved]
